FAERS Safety Report 5553688-6 (Version None)
Quarter: 2007Q4

REPORT INFORMATION
  Report Type: 
  Country: None (occurrence: None)
  Receive Date: 20071213
  Receipt Date: 20070928
  Transmission Date: 20080405
  Serious: Yes (Other)
  Sender: FDA-Public Use
  Company Number: US-ROCHE-392366

PATIENT
  Age: 76 Year
  Sex: Female

DRUGS (3)
  1. XELODA [Suspect]
     Indication: COLON CANCER
     Dosage: THE DOSE WAS DECREASED. PATIENT WAS ON THERAPY FOR AN APPROXIMATE DURATION OF 6 MONTHS.
     Route: 048
     Dates: end: 20050701
  2. XELODA [Suspect]
     Dosage: DOSAGE IS 2000MG DAILY, 2X 500MG TWICE A DAY, FOR 1 WEEK, FOLLOWED WITH ONE WEEKS REST.
     Route: 048
     Dates: start: 20050107
  3. LANOXIN [Concomitant]
     Route: 048
     Dates: start: 20010101

REACTIONS (13)
  - ARTHRALGIA [None]
  - EXTRASYSTOLES [None]
  - FATIGUE [None]
  - HERPES ZOSTER [None]
  - HOT FLUSH [None]
  - HYPERSENSITIVITY [None]
  - JOINT SWELLING [None]
  - METASTASES TO THYROID [None]
  - MYALGIA [None]
  - PALMAR-PLANTAR ERYTHRODYSAESTHESIA SYNDROME [None]
  - PAROSMIA [None]
  - PHARYNGOLARYNGEAL PAIN [None]
  - SKIN EXFOLIATION [None]
